FAERS Safety Report 8614531 (Version 2)
Quarter: 2014Q1

REPORT INFORMATION
  Report Type: Spontaneous
  Country: US (occurrence: US)
  Receive Date: 20120614
  Receipt Date: 20140108
  Transmission Date: 20141002
  Serious: Yes (Hospitalization)
  Sender: FDA-Public Use
  Company Number: US-ASTRAZENECA-2012SE35699

PATIENT
  Age: 22243 Day
  Sex: Male
  Weight: 90.7 kg

DRUGS (14)
  1. NEXIUM [Suspect]
     Indication: GASTROOESOPHAGEAL REFLUX DISEASE
     Route: 048
     Dates: start: 200202
  2. NEXIUM [Suspect]
     Indication: GASTROOESOPHAGEAL REFLUX DISEASE
     Route: 048
     Dates: start: 200202
  3. RANITIDINE [Concomitant]
     Indication: GASTROOESOPHAGEAL REFLUX DISEASE
     Dates: start: 200202
  4. RANITIDINE [Concomitant]
     Indication: GASTROOESOPHAGEAL REFLUX DISEASE
     Dates: start: 200202
  5. CALCIUM [Concomitant]
  6. VITAMIN D [Concomitant]
  7. TESTOPEL [Concomitant]
  8. CARVEDILOL [Concomitant]
     Dosage: 3.125 MG, MORNING AND NIGHT
  9. LIPITOR [Concomitant]
  10. ZETIA [Concomitant]
  11. FLOMAX [Concomitant]
  12. ALPRAZOLAM [Concomitant]
     Dosage: TWICE, MORNING AND NIGHT
  13. BABY ASPIRIN [Concomitant]
  14. LOSARTAN [Concomitant]

REACTIONS (8)
  - Upper limb fracture [Unknown]
  - Fall [Unknown]
  - Osteoporosis [Unknown]
  - Bone density decreased [Unknown]
  - Bone pain [Unknown]
  - Cataract [Unknown]
  - Cardiovascular disorder [Unknown]
  - Androgen deficiency [Unknown]
